FAERS Safety Report 6502384-7 (Version None)
Quarter: 2009Q4

REPORT INFORMATION
  Report Type: 
  Country: None (occurrence: None)
  Receive Date: 20091203
  Receipt Date: 20091118
  Transmission Date: 20100525
  Serious: Yes (Other)
  Sender: FDA-Public Use
  Company Number: 2009300157

PATIENT
  Sex: Male

DRUGS (1)
  1. FRAGMIN [Suspect]
     Indication: VERTIGO
     Dosage: 500O IU, SUBCUTANEOUS
     Route: 058

REACTIONS (2)
  - DEVICE BREAKAGE [None]
  - SYRINGE ISSUE [None]
